FAERS Safety Report 16937525 (Version 3)
Quarter: 2020Q3

REPORT INFORMATION
  Report Type: Spontaneous
  Country: US (occurrence: US)
  Receive Date: 20191019
  Receipt Date: 20200814
  Transmission Date: 20201102
  Serious: Yes (Death, Hospitalization, Other)
  Sender: FDA-Public Use
  Company Number: US-009507513-1910USA011917

PATIENT
  Sex: Male
  Weight: 68.48 kg

DRUGS (5)
  1. JANUVIA [Suspect]
     Active Substance: SITAGLIPTIN PHOSPHATE
     Indication: TYPE 2 DIABETES MELLITUS
     Dosage: 100 MG (1 TABLET) ONCE DAILY
     Route: 048
     Dates: start: 20170809, end: 201709
  2. GLUCOTROL [Concomitant]
     Active Substance: GLIPIZIDE
     Dosage: ALSO REPORTED AS: 2 TABLETS DAILY
     Route: 048
  3. GLUCOPHAGE XR [Concomitant]
     Active Substance: METFORMIN HYDROCHLORIDE
     Dosage: 2 TABLET 2 TIMES DAILY
     Route: 048
  4. JANUVIA [Suspect]
     Active Substance: SITAGLIPTIN PHOSPHATE
     Dosage: 100 MG ONCE DAILY
     Route: 048
     Dates: start: 20180411, end: 20180419
  5. GLUCOTROL [Concomitant]
     Active Substance: GLIPIZIDE
     Dosage: ALSO REPORTED AS: 4 TABLETS DAILY
     Route: 048

REACTIONS (45)
  - Pancreatic duct dilatation [Unknown]
  - Pulmonary fibrosis [Unknown]
  - Gastrointestinal disorder [Unknown]
  - Constipation [Unknown]
  - Incorrect dose administered [Unknown]
  - Pancreatic carcinoma metastatic [Fatal]
  - Cancer pain [Unknown]
  - Haematocrit decreased [Unknown]
  - Hepatic encephalopathy [Unknown]
  - Delirium [Unknown]
  - Polydipsia [Unknown]
  - Stomach mass [Unknown]
  - Hypertension [Unknown]
  - Respiration abnormal [Unknown]
  - Acquired oesophageal web [Unknown]
  - Nausea [Not Recovered/Not Resolved]
  - Diabetic ketoacidosis [Recovered/Resolved]
  - Gastric ulcer [Unknown]
  - Blood pressure abnormal [Unknown]
  - Red blood cell count abnormal [Unknown]
  - Cholelithiasis [Unknown]
  - Diverticulum intestinal [Unknown]
  - Wrong technique in product usage process [Unknown]
  - Encephalopathy [Unknown]
  - Intestinal angioedema [Unknown]
  - Infection [Unknown]
  - Heart rate increased [Unknown]
  - Sleep apnoea syndrome [Unknown]
  - Polyuria [Unknown]
  - Pleural effusion [Unknown]
  - Prostatomegaly [Unknown]
  - Vomiting [Not Recovered/Not Resolved]
  - Ascites [Unknown]
  - Oesophageal stenosis [Unknown]
  - Transfusion [Unknown]
  - Oxygen saturation decreased [Unknown]
  - Adjustment disorder with depressed mood [Unknown]
  - Hepatic cyst [Unknown]
  - Splenomegaly [Unknown]
  - Gastrointestinal wall thickening [Unknown]
  - Haemoglobin decreased [Unknown]
  - Hypoxia [Unknown]
  - Splenic vein thrombosis [Unknown]
  - Arterial occlusive disease [Unknown]
  - Hiatus hernia [Unknown]

NARRATIVE: CASE EVENT DATE: 2018
